FAERS Safety Report 6566019-X (Version None)
Quarter: 2010Q1

REPORT INFORMATION
  Report Type: 
  Country: None (occurrence: None)
  Receive Date: 20100129
  Receipt Date: 20100129
  Transmission Date: 20100710
  Serious: Yes (Other)
  Sender: FDA-Public Use
  Company Number: None

PATIENT
  Sex: Female
  Weight: 77.3 kg

DRUGS (13)
  1. XYREM [Suspect]
     Indication: NARCOLEPSY
     Dosage: 3.75GM/60MLS WATER 2XBUT TAKE ALL IN 1
     Dates: start: 20050101
  2. XYREM [Suspect]
     Indication: SLEEP APNOEA SYNDROME
     Dosage: REPEAT 2 1/2 TO 4 HRS BUT INSTRUCTED TO TAKE 1X
  3. PROZAC [Concomitant]
  4. D-2000 [Concomitant]
  5. WELLBUTRIN SR [Concomitant]
  6. MEDADATE CO [Concomitant]
  7. ABILIFY [Concomitant]
  8. LORATADINE [Concomitant]
  9. ACAI BERRY CLEANSE [Concomitant]
  10. MOTRIN [Concomitant]
  11. FAT BURN CLEANSE [Concomitant]
  12. CPAP [Concomitant]
  13. ADVAIR DISKUS 100/50 [Concomitant]

REACTIONS (21)
  - ANXIETY [None]
  - BACK PAIN [None]
  - CHEST PAIN [None]
  - DEHYDRATION [None]
  - DEPRESSION [None]
  - DIZZINESS [None]
  - DYSPNOEA [None]
  - ENURESIS [None]
  - FEELING JITTERY [None]
  - HAEMORRHAGE [None]
  - HEADACHE [None]
  - HEART RATE INCREASED [None]
  - HYPOAESTHESIA [None]
  - INSOMNIA [None]
  - MENTAL DISORDER [None]
  - METRORRHAGIA [None]
  - MUSCLE SPASMS [None]
  - PERIPHERAL COLDNESS [None]
  - SOMNAMBULISM [None]
  - WEIGHT DECREASED [None]
  - WEIGHT INCREASED [None]
